FAERS Safety Report 22170650 (Version 1)
Quarter: 2023Q2

REPORT INFORMATION
  Report Type: Spontaneous
  Country: US (occurrence: US)
  Receive Date: 20230404
  Receipt Date: 20230404
  Transmission Date: 20230721
  Serious: No
  Sender: FDA-Public Use
  Company Number: US-LUPIN PHARMACEUTICALS INC.-2023-02505

PATIENT
  Sex: Female

DRUGS (1)
  1. QUETIAPINE FUMARATE [Suspect]
     Active Substance: QUETIAPINE FUMARATE
     Indication: Sleep disorder
     Dosage: 1 DOSAGE FORM, QD (1 TABLET PER DAY AT BEDTIME)
     Route: 065

REACTIONS (3)
  - Sneezing [Unknown]
  - Cough [Unknown]
  - Nasopharyngitis [Unknown]
